FAERS Safety Report 6355092-X (Version None)
Quarter: 2009Q3

REPORT INFORMATION
  Report Type: 
  Country: None (occurrence: None)
  Receive Date: 20090914
  Receipt Date: 20090909
  Transmission Date: 20100115
  Serious: Yes (Death, Hospitalization)
  Sender: FDA-Public Use
  Company Number: GR-SANOFI-SYNTHELABO-A01200909363

PATIENT
  Age: 79 Year
  Sex: Male
  Weight: 76 kg

DRUGS (5)
  1. ISOVORIN [Concomitant]
     Route: 041
     Dates: start: 20090602, end: 20090602
  2. VECTIBIX [Suspect]
     Indication: LARGE INTESTINE CARCINOMA
     Route: 041
     Dates: start: 20090602, end: 20090602
  3. FLUOROURACIL [Concomitant]
     Route: 040
     Dates: start: 20090602, end: 20090602
  4. FLUOROURACIL [Concomitant]
     Route: 041
     Dates: start: 20090602, end: 20090603
  5. OXALIPLATIN [Suspect]
     Indication: LARGE INTESTINE CARCINOMA
     Route: 041
     Dates: start: 20090602, end: 20090602

REACTIONS (1)
  - DYSPNOEA [None]
